FAERS Safety Report 7989036-1 (Version None)
Quarter: 2011Q4

REPORT INFORMATION
  Report Type: 
  Country: None (occurrence: None)
  Receive Date: 20111219
  Receipt Date: 20111213
  Transmission Date: 20120403
  Serious: Yes (Other)
  Sender: FDA-Public Use
  Company Number: US-BAYER-2011-121231

PATIENT
  Age: 64 Year
  Sex: Female

DRUGS (1)
  1. BETASERON [Suspect]
     Indication: MULTIPLE SCLEROSIS
     Dosage: 0.25 MG, QOD
     Route: 058
     Dates: start: 20081006

REACTIONS (6)
  - SINUSITIS [None]
  - INJECTION SITE ERYTHEMA [None]
  - INJECTION SITE ULCER [None]
  - INJECTION SITE CYST [None]
  - INJECTION SITE PAIN [None]
  - INJECTION SITE INDURATION [None]
